FAERS Safety Report 25889397 (Version 1)
Quarter: 2025Q4

REPORT INFORMATION
  Report Type: Other
  Country: EU (occurrence: EU)
  Receive Date: 20251007
  Receipt Date: 20251007
  Transmission Date: 20260118
  Serious: Yes (Hospitalization)
  Sender: ZYDUS PHARM
  Company Number: None

PATIENT

DRUGS (6)
  1. TOPIRAMATE [Interacting]
     Active Substance: TOPIRAMATE
     Indication: Suicide attempt
     Dosage: 650 MILLIGRAM 1 TOTAL
     Route: 048
     Dates: start: 20250804, end: 20250804
  2. VENLAFAXINE [Interacting]
     Active Substance: VENLAFAXINE HYDROCHLORIDE
     Indication: Suicide attempt
     Dosage: 2925 MILLIGRAM 1 TOTAL
     Route: 048
     Dates: start: 20250804, end: 20250804
  3. CLORAZEPATE DIPOTASSIUM [Interacting]
     Active Substance: CLORAZEPATE DIPOTASSIUM
     Indication: Suicide attempt
     Dosage: 600 MILLIGRAM 1 TOTAL
     Route: 048
     Dates: start: 20250804, end: 20250804
  4. VENLAFAXINE HYDROCHLORIDE [Concomitant]
     Active Substance: VENLAFAXINE HYDROCHLORIDE
     Indication: Depression
     Dosage: 225 MILLIGRAM EVERY 24 HRS
     Route: 048
     Dates: start: 20200212, end: 20250803
  5. CLORAZEPATE DIPOTASSIUM [Concomitant]
     Active Substance: CLORAZEPATE DIPOTASSIUM
     Indication: Depression
     Dosage: 10 MILLIGRAM AS NECCESSARY
     Route: 048
     Dates: start: 20191111, end: 20250803
  6. TOPIRAMATE [Concomitant]
     Active Substance: TOPIRAMATE
     Indication: Depression
     Dosage: 50 MILLIGRAM EVERY 12 HRS
     Route: 048
     Dates: start: 20191111, end: 20250803

REACTIONS (3)
  - Depressed level of consciousness [Recovered/Resolved]
  - Somnolence [Recovered/Resolved]
  - Intentional overdose [Recovered/Resolved]

NARRATIVE: CASE EVENT DATE: 20250804
